FAERS Safety Report 12758530 (Version 2)
Quarter: 2016Q4

REPORT INFORMATION
  Report Type: Spontaneous
  Country: US (occurrence: US)
  Receive Date: 20160919
  Receipt Date: 20161028
  Transmission Date: 20170207
  Serious: Yes (Other)
  Sender: FDA-Public Use
  Company Number: US-PFIZER INC-2016246327

PATIENT
  Age: 64 Year
  Sex: Female
  Weight: 73.48 kg

DRUGS (4)
  1. METFORMIN [Concomitant]
     Active Substance: METFORMIN HYDROCHLORIDE
     Indication: DIABETES MELLITUS
     Dosage: 850 MG, 3X/DAY
     Route: 048
  2. ENALAPRIL [Concomitant]
     Active Substance: ENALAPRIL
     Indication: BLOOD PRESSURE ABNORMAL
     Dosage: 10 MG, 1X/DAY
     Route: 048
  3. HYDROCORTISONE. [Concomitant]
     Active Substance: HYDROCORTISONE
     Indication: FLUID IMBALANCE
     Dosage: 25 MG, UNK (1 TABLET)
     Route: 048
  4. LYRICA [Suspect]
     Active Substance: PREGABALIN
     Indication: PERIPHERAL NERVE INJURY
     Dosage: 75 MG, 2X/DAY (IN THE MORNING AND BEFORE BED)
     Route: 048

REACTIONS (6)
  - Limb discomfort [Unknown]
  - Activities of daily living impaired [Unknown]
  - Pain [Unknown]
  - Burning sensation [Unknown]
  - Condition aggravated [Unknown]
  - Abasia [Unknown]
